FAERS Safety Report 5223693-8 (Version None)
Quarter: 2007Q1

REPORT INFORMATION
  Report Type: 
  Country: None (occurrence: None)
  Receive Date: 20070125
  Receipt Date: 20070110
  Transmission Date: 20070707
  Serious: Yes (Hospitalization)
  Sender: FDA-Public Use
  Company Number: 6028952

PATIENT
  Age: 96 Year
  Sex: Female

DRUGS (7)
  1. BISOPROLOL FUMARATE [Suspect]
     Indication: DRUG USE FOR UNKNOWN INDICATION
     Dosage: 1.25 MG, ORAL
     Route: 048
     Dates: start: 20061204
  2. TRIATEC (1.25 MG) (RAMIPRIL) [Suspect]
     Indication: DRUG USE FOR UNKNOWN INDICATION
     Dosage: 1 DOSAGE, ORAL
     Route: 048
     Dates: start: 20061205
  3. CALCIPARINE [Concomitant]
  4. KARDEGIC (ACETYLSALICYLIC LYSINE) [Concomitant]
  5. LANSOPRAZOLE [Concomitant]
  6. PLAVIX [Concomitant]
  7. ZOCOR [Concomitant]

REACTIONS (2)
  - ACUTE PULMONARY OEDEMA [None]
  - HYPOTENSION [None]
